FAERS Safety Report 9485915 (Version 1)
Quarter: 2013Q1

REPORT INFORMATION
  Report Type: Spontaneous
  Country: US (occurrence: None)
  Receive Date: 20121226
  Receipt Date: 20121226
  Transmission Date: 20140127
  Serious: Yes (Other)
  Sender: FDA-Public Use
  Company Number: 2012PROUSA02335

PATIENT
  Age: 81 Year
  Sex: Male
  Weight: 84.4 kg

DRUGS (5)
  1. PROVENGE (SIPULEUCEL-T) SUSPENSION, 250ML [Suspect]
     Indication: PROSTATE CANCER METASTATIC
     Dosage: 250 ML, SINGLE, INTRAVENOUS
     Route: 042
     Dates: start: 20120604, end: 20120604
  2. KETOCONAZOLE [Suspect]
     Route: 048
  3. PREDNISONE(PREDNISONE) [Concomitant]
  4. DEGARELIX (DEGARELIX) [Concomitant]
  5. LUPRON (LEUPRORELIN ACETATE) [Concomitant]

REACTIONS (5)
  - Shock [None]
  - Loss of consciousness [None]
  - Liver function test abnormal [None]
  - Dysgeusia [None]
  - Fatigue [None]
